FAERS Safety Report 24720606 (Version 1)
Quarter: 2024Q4

REPORT INFORMATION
  Report Type: Spontaneous
  Country: US (occurrence: US)
  Receive Date: 20241211
  Receipt Date: 20241211
  Transmission Date: 20250115
  Serious: No
  Sender: CELLTRION
  Company Number: US-CELLTRION INC.-2024US023944

PATIENT

DRUGS (1)
  1. ZYMFENTRA [Suspect]
     Active Substance: INFLIXIMAB-DYYB
     Indication: Crohn^s disease
     Dosage: 120 MILLIGRAM ONCE EVERY WEEK
     Route: 058
     Dates: start: 202405

REACTIONS (6)
  - Device malfunction [Unknown]
  - Exposure via skin contact [Recovering/Resolving]
  - Accidental exposure to product [Recovering/Resolving]
  - Injection site bruising [Recovering/Resolving]
  - Drug dose omission by device [Unknown]
  - Intentional product use issue [Unknown]

NARRATIVE: CASE EVENT DATE: 20240919
